FAERS Safety Report 19840741 (Version 2)
Quarter: 2022Q3

REPORT INFORMATION
  Report Type: Spontaneous
  Country: FR (occurrence: FR)
  Receive Date: 20210916
  Receipt Date: 20220728
  Transmission Date: 20221027
  Serious: Yes (Other)
  Sender: FDA-Public Use
  Company Number: FR-SUN PHARMACEUTICAL INDUSTRIES LTD-2021R1-311396

PATIENT
  Age: 64 Year
  Sex: Female

DRUGS (2)
  1. METHOTREXATE [Suspect]
     Active Substance: METHOTREXATE
     Indication: Chemotherapy
     Dosage: 100 MILLIGRAM/SQ. METER, DAILY(5 CYCLE), EVERY 2 WEEKS
     Route: 065
  2. METHOTREXATE [Suspect]
     Active Substance: METHOTREXATE
     Indication: Non-Hodgkin^s lymphoma

REACTIONS (5)
  - Toxicity to various agents [Unknown]
  - Sepsis [Unknown]
  - Overdose [Unknown]
  - Anaemia [Unknown]
  - Mucosal inflammation [Unknown]
